FAERS Safety Report 8984282 (Version 2)
Quarter: 2013Q1

REPORT INFORMATION
  Report Type: Spontaneous
  Country: US (occurrence: US)
  Receive Date: 20121226
  Receipt Date: 20130208
  Transmission Date: 20140127
  Serious: Yes (Disabling, Other)
  Sender: FDA-Public Use
  Company Number: US-PAR PHARMACEUTICAL, INC-2011MA005574

PATIENT
  Sex: Female
  Weight: 63.49 kg

DRUGS (33)
  1. METOCLOPRAMIDE [Suspect]
     Indication: NAUSEA
     Dosage: 10 MG, TID
     Route: 048
     Dates: start: 20080923, end: 20090609
  2. METOCLOPRAMIDE [Suspect]
     Indication: DIARRHOEA
  3. METOCLOPRAMIDE [Suspect]
     Indication: CONSTIPATION
  4. METOCLOPRAMIDE [Suspect]
     Indication: ABDOMINAL PAIN
  5. METOCLOPRAMIDE [Suspect]
     Indication: ABDOMINAL DISTENSION
  6. ALPRAZOLAM [Concomitant]
     Indication: PRODUCT USED FOR UNKNOWN INDICATION
     Dosage: UNK, UNKNOWN
     Route: 065
  7. CENTRUM SILVER                     /01292501/ [Concomitant]
     Indication: PRODUCT USED FOR UNKNOWN INDICATION
     Dosage: UNK, UNKNOWN
     Route: 065
  8. CHLORDIAZEPOXIDE [Concomitant]
     Indication: PRODUCT USED FOR UNKNOWN INDICATION
     Dosage: UNK, UNKNOWN
     Route: 065
  9. DIPHENOXYLATE/ATROPINE [Concomitant]
     Indication: PRODUCT USED FOR UNKNOWN INDICATION
     Dosage: UNK, UNKNOWN
     Route: 065
  10. FLAGYL /00012501/ [Concomitant]
     Indication: PRODUCT USED FOR UNKNOWN INDICATION
     Dosage: UNK, UNKNOWN
     Route: 065
  11. FUROSEMIDE [Concomitant]
     Indication: PRODUCT USED FOR UNKNOWN INDICATION
     Dosage: UNK, UNKNOWN
     Route: 065
  12. LANTUS [Concomitant]
     Indication: PRODUCT USED FOR UNKNOWN INDICATION
     Dosage: UNK, UNKNOWN
     Route: 065
  13. HUMALOG [Concomitant]
     Indication: PRODUCT USED FOR UNKNOWN INDICATION
     Dosage: UNK, UNKNOWN
     Route: 065
  14. NOVOLIN [Concomitant]
     Indication: PRODUCT USED FOR UNKNOWN INDICATION
     Dosage: UNK, UNKNOWN
     Route: 065
  15. NOVOLOG [Concomitant]
     Indication: PRODUCT USED FOR UNKNOWN INDICATION
     Dosage: UNK, UNKNOWN
     Route: 065
  16. LACTULOSE [Concomitant]
     Indication: PRODUCT USED FOR UNKNOWN INDICATION
     Dosage: UNK, UNKNOWN
     Route: 065
  17. LEVAQUIN [Concomitant]
     Indication: PRODUCT USED FOR UNKNOWN INDICATION
     Dosage: UNK, UNKNOWN
     Route: 065
  18. LEVEMIR [Concomitant]
     Indication: PRODUCT USED FOR UNKNOWN INDICATION
     Dosage: UNK, UNKNOWN
     Route: 065
  19. LEXAPRO [Concomitant]
     Indication: PRODUCT USED FOR UNKNOWN INDICATION
     Dosage: UNK, UNKNOWN
     Route: 065
  20. METRONIDAZOLE [Concomitant]
     Indication: PRODUCT USED FOR UNKNOWN INDICATION
     Dosage: UNK, UNKNOWN
     Route: 065
  21. NADOLOL [Concomitant]
     Indication: PRODUCT USED FOR UNKNOWN INDICATION
     Dosage: UNK, UNKNOWN
     Route: 065
  22. NEXIUM                             /01479302/ [Concomitant]
     Indication: PRODUCT USED FOR UNKNOWN INDICATION
     Dosage: UNK, UNKNOWN
     Route: 065
  23. OMEPRAZOLE [Concomitant]
     Indication: PRODUCT USED FOR UNKNOWN INDICATION
     Dosage: UNK, UNKNOWN
     Route: 065
  24. ONDANSETRON [Concomitant]
     Indication: PRODUCT USED FOR UNKNOWN INDICATION
     Dosage: UNK, UNKNOWN
     Route: 065
  25. PANTOPRAZOLE [Concomitant]
     Indication: PRODUCT USED FOR UNKNOWN INDICATION
     Dosage: UNK, UNKNOWN
     Route: 065
  26. PENICILLIN VK [Concomitant]
     Indication: PRODUCT USED FOR UNKNOWN INDICATION
     Dosage: UNK, UNKNOWN
     Route: 065
  27. PREDNISONE [Concomitant]
     Indication: PRODUCT USED FOR UNKNOWN INDICATION
     Dosage: UNK, UNKNOWN
     Route: 065
  28. PROCHLORPERAZINE [Concomitant]
     Indication: PRODUCT USED FOR UNKNOWN INDICATION
     Dosage: UNK, UNKNOWN
     Route: 065
  29. PROPRANOLOL [Concomitant]
     Indication: PRODUCT USED FOR UNKNOWN INDICATION
     Dosage: UNK, UNKNOWN
     Route: 065
  30. RANITIDINE [Concomitant]
     Indication: PRODUCT USED FOR UNKNOWN INDICATION
     Dosage: UNK, UNKNOWN
     Route: 065
  31. SPIRONOLACTONE [Concomitant]
     Indication: PRODUCT USED FOR UNKNOWN INDICATION
     Dosage: UNK, UNKNOWN
     Route: 065
  32. TRAMADOL [Concomitant]
     Indication: PRODUCT USED FOR UNKNOWN INDICATION
     Dosage: UNK, UNKNOWN
     Route: 065
  33. TRIAMTERENE/HCTZ [Concomitant]
     Indication: PRODUCT USED FOR UNKNOWN INDICATION
     Dosage: UNK, UNKNOWN
     Route: 065

REACTIONS (45)
  - Nervous system disorder [Unknown]
  - Movement disorder [Unknown]
  - Disability [Unknown]
  - Incorrect drug administration duration [Unknown]
  - Drug level above therapeutic [Unknown]
  - Brain injury [Unknown]
  - Pain [Unknown]
  - Emotional distress [Unknown]
  - Economic problem [Unknown]
  - Chronic hepatic failure [Unknown]
  - Malaise [Unknown]
  - Aphagia [Unknown]
  - Asthenia [Unknown]
  - Hypoaesthesia [Unknown]
  - Muscle spasms [Unknown]
  - Coagulopathy [Unknown]
  - Tooth loss [Unknown]
  - Oedema [Unknown]
  - Lethargy [Unknown]
  - General physical condition abnormal [Unknown]
  - Platelet count decreased [Unknown]
  - Staring [Unknown]
  - Hypokinesia [Unknown]
  - Exophthalmos [Unknown]
  - Umbilical hernia [Unknown]
  - Reflexes abnormal [Unknown]
  - Muscle tightness [Unknown]
  - Weight decreased [Unknown]
  - Oesophageal ulcer [Unknown]
  - Flat affect [Unknown]
  - Poor personal hygiene [Unknown]
  - Mental status changes [Unknown]
  - Gastritis [Unknown]
  - Decreased appetite [Unknown]
  - Hepatic enzyme abnormal [Unknown]
  - Blood bilirubin abnormal [Unknown]
  - Blood albumin abnormal [Unknown]
  - Fluid retention [Unknown]
  - Tardive dyskinesia [Unknown]
  - Extrapyramidal disorder [Unknown]
  - Dystonia [Unknown]
  - Akathisia [Unknown]
  - Nausea [Unknown]
  - Fatigue [Unknown]
  - Jaundice [Unknown]
